FAERS Safety Report 5826815-0 (Version None)
Quarter: 2008Q3

REPORT INFORMATION
  Report Type: 
  Country: None (occurrence: None)
  Receive Date: 20080728
  Receipt Date: 20080728
  Transmission Date: 20090109
  Serious: Yes (Hospitalization)
  Sender: FDA-Public Use
  Company Number: None

PATIENT
  Sex: Female
  Weight: 27.6 kg

DRUGS (1)
  1. CO-TRIMOXAZOLE [Suspect]
     Indication: URINARY TRACT INFECTION
     Dates: start: 20080619, end: 20080628

REACTIONS (19)
  - ANGIOEDEMA [None]
  - DYSPHAGIA [None]
  - FEELING ABNORMAL [None]
  - LIP BLISTER [None]
  - LIP SWELLING [None]
  - OCULAR HYPERAEMIA [None]
  - OEDEMA PERIPHERAL [None]
  - ORAL MUCOSA EROSION [None]
  - ORAL PAIN [None]
  - PHOTOSENSITIVITY REACTION [None]
  - PRURITUS [None]
  - PYREXIA [None]
  - RASH PAPULAR [None]
  - SCAB [None]
  - SKIN HYPERPIGMENTATION [None]
  - SKIN PLAQUE [None]
  - SWELLING [None]
  - THERAPEUTIC RESPONSE DECREASED [None]
  - TONGUE DISORDER [None]
